FAERS Safety Report 18139896 (Version 1)
Quarter: 2020Q3

REPORT INFORMATION
  Report Type: Spontaneous
  Country: JP (occurrence: JP)
  Receive Date: 20200812
  Receipt Date: 20200812
  Transmission Date: 20201103
  Serious: Yes (Hospitalization)
  Sender: FDA-Public Use
  Company Number: JP-TEVA-2020-JP-1812511

PATIENT
  Age: 84 Year
  Sex: Female

DRUGS (5)
  1. SPIRONOLACTONE. [Suspect]
     Active Substance: SPIRONOLACTONE
     Indication: ASCITES
     Dosage: 50 MILLIGRAM DAILY;
     Route: 048
  2. ALBUMIN [Suspect]
     Active Substance: ALBUMIN HUMAN
     Indication: ASCITES
     Route: 065
  3. ETILEFRINE [Suspect]
     Active Substance: ETILEFRINE
     Indication: ASCITES
     Dosage: 120 MILLIGRAM DAILY;
     Route: 042
  4. FUROSEMIDE. [Suspect]
     Active Substance: FUROSEMIDE
     Indication: ASCITES
     Dosage: 20 MILLIGRAM DAILY;
     Route: 048
  5. SANDOSTATIN [Suspect]
     Active Substance: OCTREOTIDE ACETATE
     Indication: ASCITES
     Dosage: 200 MICROGRAM DAILY;
     Route: 058

REACTIONS (3)
  - Treatment failure [Unknown]
  - Atrial fibrillation [Recovered/Resolved]
  - Off label use [Unknown]
